FAERS Safety Report 13100939 (Version 1)
Quarter: 2017Q1

REPORT INFORMATION
  Report Type: Spontaneous
  Country: IT (occurrence: IT)
  Receive Date: 20170110
  Receipt Date: 20170110
  Transmission Date: 20170428
  Serious: Yes (Hospitalization)
  Sender: FDA-Public Use
  Company Number: IT-TEVA-726275ACC

PATIENT
  Age: 40 Month
  Sex: Male

DRUGS (1)
  1. QUETIAPINA [Suspect]
     Active Substance: QUETIAPINE

REACTIONS (6)
  - Self-medication [Unknown]
  - Confusional state [Recovering/Resolving]
  - Product use issue [Unknown]
  - Agitation [Recovering/Resolving]
  - Transaminases increased [Recovering/Resolving]
  - Blood creatine phosphokinase increased [Recovering/Resolving]
